FAERS Safety Report 15081207 (Version 1)
Quarter: 2018Q2

REPORT INFORMATION
  Report Type: Spontaneous
  Country: US (occurrence: US)
  Receive Date: 20180628
  Receipt Date: 20180628
  Transmission Date: 20180711
  Serious: Yes (Other)
  Sender: FDA-Public Use
  Company Number: US-ACCORD-066294

PATIENT
  Age: 64 Year
  Sex: Female
  Weight: 117.93 kg

DRUGS (1)
  1. CLONAZEPAM ACCORD [Suspect]
     Active Substance: CLONAZEPAM
     Indication: TREMOR
     Dosage: STRENGTH: 1 MG, BID
     Route: 048
     Dates: start: 201801, end: 20180224

REACTIONS (1)
  - Tremor [Unknown]
